FAERS Safety Report 4773914-0 (Version None)
Quarter: 2005Q3

REPORT INFORMATION
  Report Type: 
  Country: None (occurrence: None)
  Receive Date: 20050920
  Receipt Date: 20050906
  Transmission Date: 20060218
  Serious: Yes (Hospitalization, Other)
  Sender: FDA-Public Use
  Company Number: US-AMGEN-US149281

PATIENT
  Age: 61 Year
  Sex: Male
  Weight: 46.3 kg

DRUGS (4)
  1. EPOGEN [Suspect]
     Indication: DIALYSIS
     Route: 042
     Dates: start: 20040301
  2. OXYGEN [Concomitant]
  3. COUMADIN [Concomitant]
  4. AMIODARONE HCL [Concomitant]

REACTIONS (6)
  - ANAPHYLACTIC REACTION [None]
  - COLON CANCER [None]
  - DYSPNOEA [None]
  - HYPERSENSITIVITY [None]
  - LARYNGOSPASM [None]
  - THROAT TIGHTNESS [None]
